FAERS Safety Report 5716207-7 (Version None)
Quarter: 2008Q2

REPORT INFORMATION
  Report Type: 
  Country: None (occurrence: None)
  Receive Date: 20080424
  Receipt Date: 20080415
  Transmission Date: 20081010
  Serious: Yes (Hospitalization)
  Sender: FDA-Public Use
  Company Number: FR-AVENTIS-200811448FR

PATIENT
  Age: 84 Year
  Sex: Female

DRUGS (13)
  1. GLIMEPIRIDE [Suspect]
     Route: 048
  2. TRIATEC                            /00885601/ [Suspect]
     Route: 048
  3. CORDARONE [Suspect]
     Route: 048
     Dates: end: 20080221
  4. CARDENSIEL [Suspect]
     Route: 048
  5. PREVISCAN                          /00789001/ [Suspect]
     Route: 048
  6. TRACLEER [Concomitant]
     Route: 048
     Dates: start: 20070701, end: 20080212
  7. EFFERALGAN                         /00020001/ [Concomitant]
     Indication: RHEUMATOID ARTHRITIS
  8. NEXIUM [Concomitant]
     Route: 048
  9. LASILIX                            /00032601/ [Concomitant]
     Route: 048
  10. IMOVANE [Concomitant]
  11. TERCIAN                            /00759301/ [Concomitant]
     Route: 048
  12. VASTAREL [Concomitant]
  13. SEROPLEX [Concomitant]

REACTIONS (1)
  - INTERSTITIAL LUNG DISEASE [None]
